FAERS Safety Report 11272717 (Version 3)
Quarter: 2015Q3

REPORT INFORMATION
  Report Type: Spontaneous
  Country: CN (occurrence: CN)
  Receive Date: 20150715
  Receipt Date: 20150810
  Transmission Date: 20151125
  Serious: Yes (Death, Life-Threatening, Hospitalization)
  Sender: FDA-Public Use
  Company Number: PHHY2015CN084294

PATIENT
  Age: 80 Year
  Sex: Female

DRUGS (2)
  1. PANAX GINSENG [Concomitant]
     Active Substance: ASIAN GINSENG
     Indication: PRODUCT USED FOR UNKNOWN INDICATION
     Dosage: 4 G/0.2 ML
     Route: 042
     Dates: start: 20150626, end: 20150706
  2. ACLASTA [Suspect]
     Active Substance: ZOLEDRONIC ACID
     Indication: OSTEOPOROSIS
     Dosage: 5 MG, (100 ML:5 MG)
     Route: 042
     Dates: start: 20150706, end: 20150706

REACTIONS (18)
  - Haemoglobin decreased [Fatal]
  - Chills [Fatal]
  - Vomiting [Fatal]
  - Renal impairment [Fatal]
  - Blood potassium decreased [Fatal]
  - Blood creatine phosphokinase MB increased [Fatal]
  - Disseminated intravascular coagulation [Fatal]
  - White blood cell count increased [Fatal]
  - Platelet count decreased [Fatal]
  - Pyrexia [Fatal]
  - Hepatic function abnormal [Fatal]
  - Gastrointestinal disorder [Fatal]
  - Renal failure [Fatal]
  - Blood phosphorus decreased [Fatal]
  - Blood calcium decreased [Fatal]
  - Coagulopathy [Fatal]
  - Multi-organ failure [Fatal]
  - Hypersensitivity [Fatal]

NARRATIVE: CASE EVENT DATE: 20150707
